FAERS Safety Report 6765128-X (Version None)
Quarter: 2010Q2

REPORT INFORMATION
  Report Type: 
  Country: None (occurrence: None)
  Receive Date: 20100609
  Receipt Date: 20100609
  Transmission Date: 20101027
  Serious: Yes (Other)
  Sender: FDA-Public Use
  Company Number: None

PATIENT
  Age: 83 Year
  Sex: Female
  Weight: 61.2356 kg

DRUGS (1)
  1. ACTONEL [Suspect]
     Indication: OSTEOPENIA
     Dosage: 1 TABLET MONTHLY
     Dates: start: 20100501

REACTIONS (13)
  - ARTHRALGIA [None]
  - ARTHROPATHY [None]
  - DRUG INEFFECTIVE [None]
  - DYSGRAPHIA [None]
  - INSOMNIA [None]
  - JOINT SWELLING [None]
  - MIDDLE INSOMNIA [None]
  - MOVEMENT DISORDER [None]
  - MUSCULAR WEAKNESS [None]
  - NECK PAIN [None]
  - PAIN [None]
  - PAIN IN EXTREMITY [None]
  - PRURITUS [None]
